FAERS Safety Report 4341047-3 (Version None)
Quarter: 2004Q2

REPORT INFORMATION
  Report Type: 
  Country: None (occurrence: None)
  Receive Date: 20040419
  Receipt Date: 20040402
  Transmission Date: 20050107
  Serious: Yes (Death, Hospitalization, Other)
  Sender: FDA-Public Use
  Company Number: US-MERCK-0404USA00203

PATIENT
  Age: 63 Year
  Sex: Female

DRUGS (3)
  1. ASPIRIN [Concomitant]
     Route: 065
  2. GEMFIBROZIL [Concomitant]
     Route: 065
  3. ZOCOR [Suspect]
     Route: 048

REACTIONS (4)
  - FALL [None]
  - RENAL FAILURE ACUTE [None]
  - RHABDOMYOLYSIS [None]
  - VIRAL INFECTION [None]
